FAERS Safety Report 16040156 (Version 1)
Quarter: 2019Q2

REPORT INFORMATION
  Report Type: Spontaneous
  Country: US (occurrence: US)
  Receive Date: 20190305
  Receipt Date: 20190305
  Transmission Date: 20190711
  Serious: Yes (Other)
  Sender: FDA-Public Use
  Company Number: None

PATIENT
  Age: 58 Year
  Sex: Female

DRUGS (2)
  1. LOSARTAN 25MG [Suspect]
     Active Substance: LOSARTAN
     Indication: PROPHYLAXIS
     Dates: start: 20170914, end: 20190228
  2. VALSARTAN. [Suspect]
     Active Substance: VALSARTAN

REACTIONS (1)
  - Breast cancer [None]

NARRATIVE: CASE EVENT DATE: 20181226
